FAERS Safety Report 12197100 (Version 6)
Quarter: 2016Q3

REPORT INFORMATION
  Report Type: Report from Study
  Country: US (occurrence: US)
  Receive Date: 20160321
  Receipt Date: 20160802
  Transmission Date: 20161109
  Serious: Yes (Death, Hospitalization, Other)
  Sender: FDA-Public Use
  Company Number: US-ALEXION-A201601827

PATIENT
  Age: 61 Year
  Sex: Female

DRUGS (1)
  1. SOLIRIS [Suspect]
     Active Substance: ECULIZUMAB
     Indication: HAEMOLYTIC URAEMIC SYNDROME
     Dosage: 1200 MG, Q2W
     Route: 042
     Dates: start: 20150708, end: 20160225

REACTIONS (8)
  - Drug ineffective [Not Recovered/Not Resolved]
  - Hypotension [Unknown]
  - Laboratory test abnormal [Unknown]
  - Ovarian cancer recurrent [Fatal]
  - Chest pain [Unknown]
  - Hepatic failure [Unknown]
  - Neoplasm [Unknown]
  - Blood creatinine increased [Unknown]

NARRATIVE: CASE EVENT DATE: 20160309
